FAERS Safety Report 18510573 (Version 1)
Quarter: 2020Q4

REPORT INFORMATION
  Report Type: Spontaneous
  Country: US (occurrence: US)
  Receive Date: 20201116
  Receipt Date: 20201116
  Transmission Date: 20210114
  Serious: Yes (Death)
  Sender: FDA-Public Use
  Company Number: None

PATIENT
  Sex: Male

DRUGS (9)
  1. FINASTERIDE. [Concomitant]
     Active Substance: FINASTERIDE
  2. CLONIDINE. [Concomitant]
     Active Substance: CLONIDINE
  3. HYDROCHLOROT [Concomitant]
     Active Substance: HYDROCHLOROTHIAZIDE
  4. METOPROL TAR [Concomitant]
  5. TERBINAFINE. [Concomitant]
     Active Substance: TERBINAFINE
  6. ALLOPURINOL. [Concomitant]
     Active Substance: ALLOPURINOL
  7. HUMIRA [Suspect]
     Active Substance: ADALIMUMAB
     Indication: CROHN^S DISEASE
     Route: 058
     Dates: start: 20200922
  8. TAMSULOSIN [Concomitant]
     Active Substance: TAMSULOSIN
  9. ELIQUIS [Concomitant]
     Active Substance: APIXABAN

REACTIONS (1)
  - Death [None]
